FAERS Safety Report 7341835-5 (Version None)
Quarter: 2011Q1

REPORT INFORMATION
  Report Type: 
  Country: None (occurrence: None)
  Receive Date: 20110309
  Receipt Date: 20110224
  Transmission Date: 20110831
  Serious: Yes (Other)
  Sender: FDA-Public Use
  Company Number: SE-ELI_LILLY_AND_COMPANY-SE201102006678

PATIENT
  Age: 54 Year
  Sex: Male

DRUGS (1)
  1. ARICLAIM [Suspect]
     Dosage: 30 MG, DAILY (1/D)
     Route: 048
     Dates: start: 20101001, end: 20110209

REACTIONS (1)
  - MIXED LIVER INJURY [None]
